FAERS Safety Report 7414043-7 (Version None)
Quarter: 2011Q2

REPORT INFORMATION
  Report Type: 
  Country: None (occurrence: None)
  Receive Date: 20110414
  Receipt Date: 20080919
  Transmission Date: 20111010
  Serious: No
  Sender: FDA-Public Use
  Company Number: 2008BI025358

PATIENT
  Age: 48 Year
  Sex: Female

DRUGS (1)
  1. TYSABRI [Suspect]
     Indication: MULTIPLE SCLEROSIS
     Route: 042
     Dates: start: 20080703, end: 20080905

REACTIONS (8)
  - TRIGGER FINGER [None]
  - MENTAL IMPAIRMENT [None]
  - MALAISE [None]
  - IMMUNOSUPPRESSION [None]
  - HERPES ZOSTER [None]
  - TONGUE ERUPTION [None]
  - ORAL MUCOSAL ERUPTION [None]
  - OROPHARYNGEAL PAIN [None]
